FAERS Safety Report 25575894 (Version 1)
Quarter: 2025Q3

REPORT INFORMATION
  Report Type: Other
  Country: GB (occurrence: GB)
  Receive Date: 20250718
  Receipt Date: 20250718
  Transmission Date: 20251021
  Serious: Yes (Life-Threatening, Hospitalization, Other)
  Sender: STRIDES
  Company Number: GB-Dawa-007692

PATIENT
  Age: 32 Year
  Sex: Male

DRUGS (5)
  1. METHYLPHENIDATE [Suspect]
     Active Substance: METHYLPHENIDATE
     Indication: Product used for unknown indication
     Route: 065
  2. MODAFINIL [Suspect]
     Active Substance: MODAFINIL
     Indication: Product used for unknown indication
     Route: 065
  3. DEMANNOSE [Suspect]
     Active Substance: DEMANNOSE
     Indication: Urinary tract infection
     Route: 065
  4. CEFTRIAXONE [Concomitant]
     Active Substance: CEFTRIAXONE
     Indication: Product used for unknown indication
     Route: 065
  5. ACYCLOVIR [Concomitant]
     Active Substance: ACYCLOVIR
     Indication: Product used for unknown indication
     Route: 065

REACTIONS (19)
  - Amnesia [Recovered/Resolved]
  - Brain oedema [Recovered/Resolved]
  - Hyponatraemia [Recovered/Resolved]
  - Loss of consciousness [Recovered/Resolved]
  - Pneumonia aspiration [Recovered/Resolved]
  - Hypovolaemia [Recovered/Resolved]
  - Cognitive disorder [Recovered/Resolved]
  - Hypovolaemic shock [Unknown]
  - Coma scale abnormal [Unknown]
  - Hypoosmolar state [Recovered/Resolved]
  - Hypertonia [Recovered/Resolved]
  - Ecchymosis [Recovered/Resolved]
  - Urine sodium increased [Recovered/Resolved]
  - Intracranial pressure increased [Unknown]
  - Intentional product use issue [Recovered/Resolved]
  - White blood cell count increased [Recovered/Resolved]
  - Vomiting [Recovered/Resolved]
  - Overdose [Recovered/Resolved]
  - Drug abuse [Unknown]
